FAERS Safety Report 24700778 (Version 1)
Quarter: 2024Q4

REPORT INFORMATION
  Report Type: Other
  Country: PT (occurrence: PT)
  Receive Date: 20241205
  Receipt Date: 20241205
  Transmission Date: 20250115
  Serious: Yes (Disabling)
  Sender: ASPEN
  Company Number: None

PATIENT

DRUGS (7)
  1. DEXAMETHASONE SODIUM PHOSPHATE [Suspect]
     Active Substance: DEXAMETHASONE SODIUM PHOSPHATE
     Indication: Invasive breast carcinoma
     Dosage: 1ST DAY CYCLE 20 MG + 2ND DAY CYCLE 8 MG 12/12H + 3RD DAY CYCLE 8 MG 1XDAY
     Route: 065
     Dates: start: 20240902
  2. PERJETA [Suspect]
     Active Substance: PERTUZUMAB
     Indication: Invasive breast carcinoma
     Dosage: 420 MG EVERY 21 DAYS
     Route: 065
     Dates: start: 20240902
  3. TRASTUZUMAB [Suspect]
     Active Substance: TRASTUZUMAB
     Indication: Invasive breast carcinoma
     Dosage: 6MG/KG IN 250 ML SODIUM CHLORIDE 0.9% (IN 30MIN)
     Route: 042
     Dates: start: 20240902
  4. GRANISETRON [Suspect]
     Active Substance: GRANISETRON
     Indication: Invasive breast carcinoma
     Dosage: 2 MILLIGRAM (2MG PER OS)
     Route: 065
     Dates: start: 20240902
  5. DOCETAXEL [Suspect]
     Active Substance: DOCETAXEL
     Indication: Invasive breast carcinoma
     Dosage: 75MG/M2 IN 250ML OF 0.9% SODIUM CHLORIDE (IN 60 MIN)
     Route: 042
     Dates: start: 20240902
  6. CARBOPLATIN [Suspect]
     Active Substance: CARBOPLATIN
     Indication: Invasive breast carcinoma
     Dosage: AUC 6 IN 500ML OF 0.9% SODIUM CHLORIDE (IN 60 MIN)
     Route: 065
     Dates: start: 20240902
  7. PEGFILGRASTIM [Suspect]
     Active Substance: PEGFILGRASTIM
     Indication: Invasive breast carcinoma
     Dosage: 6 MILLIGRAM (6MG SC)
     Route: 058
     Dates: start: 20240903

REACTIONS (3)
  - Off label use [Unknown]
  - Diarrhoea [Recovering/Resolving]
  - Malaise [Recovering/Resolving]

NARRATIVE: CASE EVENT DATE: 20240902
